FAERS Safety Report 7927554-2 (Version None)
Quarter: 2011Q4

REPORT INFORMATION
  Report Type: 
  Country: None (occurrence: None)
  Receive Date: 20111118
  Receipt Date: 20111103
  Transmission Date: 20120403
  Serious: Yes (Hospitalization)
  Sender: FDA-Public Use
  Company Number: US-ENDO PHARMACEUTICALS INC.-ENDC20110242

PATIENT
  Sex: Male

DRUGS (5)
  1. FUROSEMIDE [Concomitant]
     Indication: BLOOD PRESSURE INCREASED
     Route: 048
  2. CLONIDINE [Concomitant]
     Indication: INSOMNIA
     Dosage: UNK
     Route: 048
  3. HYDROCHLOROTHIAZIDE [Concomitant]
     Indication: BLOOD PRESSURE INCREASED
     Route: 048
  4. CYCLOBENZAPRINE [Concomitant]
     Indication: PRODUCT USED FOR UNKNOWN INDICATION
     Route: 048
  5. OXYCODONE AND ACETAMINOPHEN [Suspect]
     Indication: BACK PAIN
     Dosage: 30/975 MG
     Route: 048
     Dates: start: 20110101

REACTIONS (4)
  - TOXICITY TO VARIOUS AGENTS [None]
  - CHEST PAIN [None]
  - BACK PAIN [None]
  - URINARY TRACT INFECTION [None]
